FAERS Safety Report 5492347-5 (Version None)
Quarter: 2007Q4

REPORT INFORMATION
  Report Type: 
  Country: None (occurrence: None)
  Receive Date: 20071022
  Receipt Date: 20071008
  Transmission Date: 20080405
  Serious: Yes (Hospitalization, Other)
  Sender: FDA-Public Use
  Company Number: US-PFIZER INC-2006113327

PATIENT
  Sex: Female
  Weight: 70.3 kg

DRUGS (14)
  1. XALATAN [Suspect]
     Indication: GLAUCOMA
  2. CYCLOSPORINE [Concomitant]
  3. CRESTOR [Concomitant]
  4. NORVASC [Concomitant]
  5. VITAMINS [Concomitant]
  6. TAMSULOSIN HYDROCHLORIDE [Concomitant]
  7. IBANDRONATE SODIUM [Concomitant]
  8. LUMIGAN [Concomitant]
  9. TRAVATAN [Concomitant]
  10. ALPHAGAN [Concomitant]
  11. PILOCARPINE [Concomitant]
  12. MOXIFLOXACIN HCL [Concomitant]
  13. NEVANAC [Concomitant]
  14. ECONOPRED [Concomitant]

REACTIONS (11)
  - ANTERIOR CHAMBER DISORDER [None]
  - CATARACT OPERATION [None]
  - CHEST PAIN [None]
  - DENTAL CARIES [None]
  - DYSGEUSIA [None]
  - GLOSSODYNIA [None]
  - INTRAOCULAR PRESSURE INCREASED [None]
  - ORAL DISORDER [None]
  - RETINAL TEAR [None]
  - TONGUE DISORDER [None]
  - TRABECULECTOMY [None]
